FAERS Safety Report 9298879 (Version 1)
Quarter: 2013Q2

REPORT INFORMATION
  Report Type: Spontaneous
  Country: US (occurrence: US)
  Receive Date: 20130520
  Receipt Date: 20130520
  Transmission Date: 20140414
  Serious: No
  Sender: FDA-Public Use
  Company Number: US-SANOFI-AVENTIS-2012SA038570

PATIENT
  Age: 72 Year
  Sex: Female

DRUGS (4)
  1. LANTUS [Suspect]
     Indication: TYPE 2 DIABETES MELLITUS
     Dosage: DOSE:16 UNIT(S)
     Route: 058
     Dates: start: 2010
  2. APIDRA [Suspect]
     Indication: TYPE 2 DIABETES MELLITUS
     Dosage: WITH MEALS AND NIGHT
     Route: 058
     Dates: start: 2010
  3. ASPIRIN [Concomitant]
  4. ANTIHYPERTENSIVES [Concomitant]

REACTIONS (6)
  - Rash pruritic [Recovered/Resolved]
  - Eczema [Not Recovered/Not Resolved]
  - Scar [Not Recovered/Not Resolved]
  - Insomnia [Not Recovered/Not Resolved]
  - Blood glucose decreased [Unknown]
  - Injection site bruising [Unknown]
